FAERS Safety Report 8688380 (Version 2)
Quarter: 2012Q4

REPORT INFORMATION
  Report Type: Spontaneous
  Country: US (occurrence: None)
  Receive Date: 20120629
  Receipt Date: 20120904
  Transmission Date: 20130627
  Serious: Yes (Hospitalization)
  Sender: FDA-Public Use
  Company Number: 2012PROUSA01551

PATIENT
  Age: 63 Year
  Sex: Male
  Weight: 82.1 kg

DRUGS (4)
  1. PROVENGE [Suspect]
     Indication: PROSTATE CANCER METASTATIC
     Route: 042
     Dates: start: 20120517, end: 20120517
  2. PROVENGE [Suspect]
     Indication: PROSTATE CANCER METASTATIC
     Route: 042
     Dates: start: 20120607, end: 20120607
  3. DIOVAN (VALSARTAN) [Concomitant]
  4. TAMSULOSIN (TAMSULOSIN) [Concomitant]

REACTIONS (2)
  - Spinal fracture [None]
  - Accident [None]
